FAERS Safety Report 25206390 (Version 1)
Quarter: 2025Q2

REPORT INFORMATION
  Report Type: Spontaneous
  Country: NL (occurrence: NL)
  Receive Date: 20250417
  Receipt Date: 20250417
  Transmission Date: 20250717
  Serious: Yes (Other)
  Sender: TEVA
  Company Number: None

PATIENT
  Age: 55 Year
  Sex: Male
  Weight: 84 kg

DRUGS (1)
  1. TADALAFIL [Suspect]
     Active Substance: TADALAFIL
     Indication: Erectile dysfunction
     Route: 048
     Dates: start: 20240105, end: 20240105

REACTIONS (4)
  - Erectile dysfunction [Not Recovered/Not Resolved]
  - Libido decreased [Not Recovered/Not Resolved]
  - Blood pressure increased [Not Recovered/Not Resolved]
  - Palpitations [Not Recovered/Not Resolved]
